FAERS Safety Report 4869228-0 (Version None)
Quarter: 2005Q4

REPORT INFORMATION
  Report Type: 
  Country: None (occurrence: None)
  Receive Date: 20051230
  Receipt Date: 20051213
  Transmission Date: 20060501
  Serious: Yes (Life-Threatening, Hospitalization)
  Sender: FDA-Public Use
  Company Number: PHEH2005US13416

PATIENT
  Age: 69 Year
  Sex: Female
  Weight: 82.086 kg

DRUGS (7)
  1. DIOVAN HCT [Suspect]
     Indication: HYPERTENSION
     Dosage: 160/12.5 MG
     Dates: start: 20040601
  2. DIOVAN HCT [Suspect]
     Dosage: 160/12.5 MG DAILY
     Route: 048
     Dates: start: 20050801, end: 20051006
  3. NEXIUM [Concomitant]
     Indication: REFLUX OESOPHAGITIS
     Dosage: 40 MG, QD
     Route: 048
  4. TRAZODONE [Concomitant]
     Indication: DEPRESSION
     Dosage: 100 MG, QD
     Route: 048
     Dates: end: 20050601
  5. LOTREL [Concomitant]
     Indication: HYPERTENSION
     Dosage: 5/20 MG DAILY
     Route: 048
     Dates: start: 20040601, end: 20051006
  6. CYMBALTA [Concomitant]
     Indication: DEPRESSION
     Dosage: 60 MG, QD
     Route: 048
     Dates: start: 20050113
  7. OGEN [Concomitant]
     Indication: MENOPAUSE
     Dosage: 1.25 MG, QD
     Route: 048
     Dates: end: 20050716

REACTIONS (10)
  - ABDOMINAL PAIN [None]
  - COLON OPERATION [None]
  - COLOSTOMY [None]
  - COMA [None]
  - DIVERTICULITIS [None]
  - FLUID RETENTION [None]
  - INFECTION [None]
  - INTESTINAL ISCHAEMIA [None]
  - PYREXIA [None]
  - SEPSIS [None]
